FAERS Safety Report 10028227 (Version 1)
Quarter: 2014Q1

REPORT INFORMATION
  Report Type: Spontaneous
  Country: US (occurrence: None)
  Receive Date: 20140319
  Receipt Date: 20140319
  Transmission Date: 20141002
  Serious: Yes (Other)
  Sender: FDA-Public Use
  Company Number: ADE14-006

PATIENT
  Age: 58 Year
  Sex: Male
  Weight: 98.4 kg

DRUGS (1)
  1. HEPARIN SODIUM [Suspect]
     Indication: AORTIC ANEURYSM REPAIR
     Dosage: 17333 U TOTAL DOSE,IV.
     Dates: start: 20140217, end: 20140217

REACTIONS (1)
  - Drug effect decreased [None]
